FAERS Safety Report 7622157-1 (Version None)
Quarter: 2011Q3

REPORT INFORMATION
  Report Type: 
  Country: None (occurrence: None)
  Receive Date: 20110720
  Receipt Date: 20110524
  Transmission Date: 20111222
  Serious: Yes (Other)
  Sender: FDA-Public Use
  Company Number: US-BAYER-2011-044864

PATIENT
  Age: 80 Year
  Sex: Female

DRUGS (1)
  1. CIPROFLOXACIN HCL [Suspect]
     Dosage: UNK
     Route: 048
     Dates: start: 20100718

REACTIONS (4)
  - OEDEMA PERIPHERAL [None]
  - ABASIA [None]
  - GAIT DISTURBANCE [None]
  - PAIN IN EXTREMITY [None]
